FAERS Safety Report 4703545-X (Version None)
Quarter: 2005Q2

REPORT INFORMATION
  Report Type: 
  Country: None (occurrence: None)
  Receive Date: 20050630
  Receipt Date: 20050617
  Transmission Date: 20051028
  Serious: Yes (Hospitalization)
  Sender: FDA-Public Use
  Company Number: FR-JNJFOC-20050605284

PATIENT
  Age: 41 Year
  Sex: Female

DRUGS (4)
  1. REMICADE [Suspect]
     Indication: ANKYLOSING SPONDYLITIS
     Route: 042
  2. OMEPRAZOLE [Suspect]
     Indication: ANKYLOSING SPONDYLITIS
     Route: 049
  3. NOVATREX [Suspect]
     Indication: ANKYLOSING SPONDYLITIS
     Route: 049
  4. CORTANCYL [Suspect]
     Indication: ANKYLOSING SPONDYLITIS
     Route: 049

REACTIONS (3)
  - CEREBRAL VENOUS THROMBOSIS [None]
  - CONVULSION [None]
  - INTRACRANIAL PRESSURE INCREASED [None]
